FAERS Safety Report 26098654 (Version 1)
Quarter: 2025Q4

REPORT INFORMATION
  Report Type: Spontaneous
  Country: US (occurrence: US)
  Receive Date: 20251127
  Receipt Date: 20251127
  Transmission Date: 20260117
  Serious: Yes (Other)
  Sender: JOHNSON AND JOHNSON
  Company Number: US-JNJFOC-20251166745

PATIENT

DRUGS (1)
  1. SPRAVATO [Suspect]
     Active Substance: ESKETAMINE
     Indication: Product used for unknown indication
     Route: 045

REACTIONS (4)
  - Suicidal ideation [Unknown]
  - Abdominal discomfort [Unknown]
  - Inappropriate schedule of product administration [Unknown]
  - Drug monitoring procedure not performed [Unknown]
